FAERS Safety Report 7791638-2 (Version None)
Quarter: 2011Q4

REPORT INFORMATION
  Report Type: 
  Country: None (occurrence: None)
  Receive Date: 20111003
  Receipt Date: 20110919
  Transmission Date: 20120403
  Serious: Yes (Hospitalization, Other)
  Sender: FDA-Public Use
  Company Number: DE-ELI_LILLY_AND_COMPANY-DE201109004782

PATIENT
  Age: 52 Year
  Sex: Female

DRUGS (5)
  1. ANALGESICS [Concomitant]
  2. PREDNISOLONE [Concomitant]
  3. VITAMIN D [Concomitant]
  4. FORTEO [Suspect]
     Indication: OSTEOPOROSIS
     Dosage: UNK, QD
     Route: 058
     Dates: start: 20100809
  5. CALCIUM CARBONATE [Concomitant]

REACTIONS (4)
  - DIARRHOEA [None]
  - FLUID RETENTION [None]
  - LOSS OF CONSCIOUSNESS [None]
  - WEIGHT DECREASED [None]
